FAERS Safety Report 4440512-8 (Version None)
Quarter: 2004Q3

REPORT INFORMATION
  Report Type: 
  Country: None (occurrence: None)
  Receive Date: 20040728
  Receipt Date: 20040415
  Transmission Date: 20050211
  Serious: No
  Sender: FDA-Public Use
  Company Number: USA030537951

PATIENT
  Age: 9 Year
  Sex: Male

DRUGS (1)
  1. STRATTERA [Suspect]
     Indication: ATTENTION DEFICIT/HYPERACTIVITY DISORDER
     Dosage: 58 MG DAY
     Dates: start: 20030201

REACTIONS (3)
  - ABNORMAL BEHAVIOUR [None]
  - IRRITABILITY [None]
  - PRESCRIBED OVERDOSE [None]
